FAERS Safety Report 4365704-8 (Version None)
Quarter: 2004Q2

REPORT INFORMATION
  Report Type: 
  Country: None (occurrence: None)
  Receive Date: 20040527
  Receipt Date: 20040517
  Transmission Date: 20050107
  Serious: Yes (Other)
  Sender: FDA-Public Use
  Company Number: PHBS2004JP06669

PATIENT
  Age: 70 Year
  Sex: Female

DRUGS (6)
  1. GLEEVEC [Suspect]
     Indication: CHRONIC MYELOID LEUKAEMIA
     Dosage: 400 MG/DAY
     Route: 048
  2. PREDONINE [Suspect]
     Route: 048
  3. GLYCYRON [Suspect]
     Route: 048
  4. POLARAMINE [Suspect]
     Route: 048
  5. BEZATOL - SLOW RELEASE [Concomitant]
     Route: 048
  6. BERIZYM [Concomitant]

REACTIONS (2)
  - NEPHRITIS [None]
  - PROTEINURIA [None]
